FAERS Safety Report 10096940 (Version 2)
Quarter: 2014Q2

REPORT INFORMATION
  Report Type: Spontaneous
  Country: US (occurrence: US)
  Receive Date: 20140422
  Receipt Date: 20140422
  Transmission Date: 20141212
  Serious: No
  Sender: FDA-Public Use
  Company Number: US-GILEAD-2012-0061800

PATIENT
  Sex: Female

DRUGS (2)
  1. LETAIRIS [Suspect]
     Indication: PULMONARY HYPERTENSION
     Dosage: 5 MG, UNK
     Route: 048
     Dates: start: 20120906, end: 2012
  2. LETAIRIS [Suspect]
     Indication: EMPHYSEMA

REACTIONS (3)
  - Malaise [Unknown]
  - Pleural effusion [Unknown]
  - Dyspnoea [Unknown]
